FAERS Safety Report 5022666-8 (Version None)
Quarter: 2006Q2

REPORT INFORMATION
  Report Type: 
  Country: None (occurrence: None)
  Receive Date: 20060605
  Receipt Date: 20060523
  Transmission Date: 20061013
  Serious: Yes (Death, Life-Threatening, Other)
  Sender: FDA-Public Use
  Company Number: JP200605002229

PATIENT
  Age: 55 Year
  Sex: Male

DRUGS (11)
  1. ZYPREXA [Suspect]
     Indication: SCHIZOPHRENIA
     Dosage: 20 MG, ORAL
     Route: 048
     Dates: start: 20060201
  2. CONTOMIIN (CHLORPROMAZINE HYDROCHLORIDE) [Concomitant]
  3. AKIRIDEN (BIPERIDEN HYDROCHLORIDE) TABLET [Concomitant]
  4. DISTIGMINE BROMIDE (DISTIGMINE BROMIDE) TABLET [Concomitant]
  5. MAGNESIUM OXIDE (MAGNESIUM OXIDE) TABLET [Concomitant]
  6. FERROMIA (FERROUS CITRATE) TABLET [Concomitant]
  7. SOMELIN (HALOXAZOLAM) TABLET [Concomitant]
  8. BENZALIN (NITRAZEPAM) TABLET [Concomitant]
  9. TINELAC (SENNOSIDE A+B) TABLET [Concomitant]
  10. VEGATAMIN A (CHLORPROMAZINE HYDROCHLORIDE, PHENOBARBITAL, PROMETHAZINE [Concomitant]
  11. DEPAKENE-R (VALPROATE SODIUM) TABLET [Concomitant]

REACTIONS (9)
  - ALANINE AMINOTRANSFERASE INCREASED [None]
  - ASPARTATE AMINOTRANSFERASE INCREASED [None]
  - BLOOD CHOLESTEROL DECREASED [None]
  - BLOOD TRIGLYCERIDES DECREASED [None]
  - DECREASED ACTIVITY [None]
  - HEPATIC FUNCTION ABNORMAL [None]
  - HYPOPROTEINAEMIA [None]
  - PNEUMONIA [None]
  - RESPIRATORY DISORDER [None]
